FAERS Safety Report 24580423 (Version 2)
Quarter: 2025Q2

REPORT INFORMATION
  Report Type: Spontaneous
  Country: US (occurrence: US)
  Receive Date: 20241105
  Receipt Date: 20250404
  Transmission Date: 20250717
  Serious: Yes (Other)
  Sender: PFIZER
  Company Number: US-PFIZER INC-PV202400142091

PATIENT
  Age: 72 Year
  Sex: Female

DRUGS (2)
  1. XELJANZ [Suspect]
     Active Substance: TOFACITINIB CITRATE
     Indication: Psoriasis
     Dosage: 5 MG, 2X/DAY
     Route: 048
     Dates: end: 20241025
  2. XELJANZ [Suspect]
     Active Substance: TOFACITINIB CITRATE
     Dosage: 5 MG, 2X/DAY
     Route: 048
     Dates: start: 202502

REACTIONS (2)
  - Renal impairment [Unknown]
  - Off label use [Unknown]

NARRATIVE: CASE EVENT DATE: 20240101
